FAERS Safety Report 9090334 (Version 3)
Quarter: 2013Q3

REPORT INFORMATION
  Report Type: Report from Study
  Country: JP (occurrence: JP)
  Receive Date: 20130201
  Receipt Date: 20130913
  Transmission Date: 20140515
  Serious: Yes (Other)
  Sender: FDA-Public Use
  Company Number: JP-VERTEX PHARMACEUTICALS INC.-2013-001411

PATIENT
  Age: 65 Year
  Sex: Male

DRUGS (18)
  1. VX-950 (TELAPREVIR) [Suspect]
     Indication: CHRONIC HEPATITIS C
     Dosage: 1500 MG, QD
     Route: 048
     Dates: start: 20120726, end: 20121016
  2. RIBAVIRIN [Suspect]
     Indication: CHRONIC HEPATITIS C
     Dosage: 400 MG, QD
     Route: 048
     Dates: start: 20120726, end: 20120911
  3. RIBAVIRIN [Suspect]
     Dosage: 200 MG, QD
     Route: 048
     Dates: start: 20120912, end: 20120927
  4. RIBAVIRIN [Suspect]
     Dosage: 200 MG/ 3 DAYS
     Route: 048
     Dates: start: 20120928, end: 20121002
  5. RIBAVIRIN [Suspect]
     Dosage: 200 MG, QW
     Route: 048
     Dates: start: 20121003, end: 20121029
  6. PEGINTRON [Suspect]
     Indication: CHRONIC HEPATITIS C
     Dosage: 1.3 ?G/KG, QW
     Route: 058
     Dates: start: 20120726
  7. PEGINTRON [Suspect]
     Dosage: 100 ?G, QW
     Route: 058
     Dates: end: 20121002
  8. PEGINTRON [Suspect]
     Dosage: 80 ?G, QW
     Route: 058
     Dates: start: 20121009, end: 20130104
  9. MYSLEE [Concomitant]
     Dosage: 5 MG, QD
     Route: 048
     Dates: end: 20130104
  10. ALLEGRA [Concomitant]
     Dosage: 120 MG, QD
     Route: 048
     Dates: end: 20120830
  11. BAYASPIRIN [Concomitant]
     Dosage: 100 MG, QD
     Route: 048
  12. PLAVIX [Concomitant]
     Dosage: 75 MG, QD
     Route: 048
  13. TAKEPRON [Concomitant]
     Dosage: 15 MG, QD
     Route: 048
  14. ADALAT [Concomitant]
     Dosage: 20 MG, QD
     Route: 048
  15. OLMETEC [Concomitant]
     Dosage: 40 MG, QD
     Route: 048
  16. ARTIST [Concomitant]
     Dosage: 2.5 MG, QD
     Route: 048
  17. CELECOX [Concomitant]
     Dosage: 200 MG, QD
     Route: 048
     Dates: end: 20130104
  18. CRESTOR [Concomitant]
     Dosage: 2.5 MG, QD
     Route: 048
     Dates: end: 20130104

REACTIONS (2)
  - Anaemia [Recovered/Resolved]
  - White blood cell count decreased [Recovered/Resolved]
